FAERS Safety Report 9996791 (Version 2)
Quarter: 2014Q1

REPORT INFORMATION
  Report Type: Spontaneous
  Country: GB (occurrence: GB)
  Receive Date: 20140311
  Receipt Date: 20140326
  Transmission Date: 20141002
  Serious: Yes (Other)
  Sender: FDA-Public Use
  Company Number: GB-BANPHARM-20142248

PATIENT
  Sex: Female

DRUGS (10)
  1. IBUPROFEN UNKNOWN PRODUCT [Suspect]
  2. DEXAMETHASONE [Suspect]
  3. DIAZEPAM [Suspect]
  4. LORAZEPAM [Suspect]
  5. METOCLOPRAMIDE [Suspect]
  6. MULTIVITAMIN [Suspect]
  7. OMEPRAZOLE [Suspect]
  8. PARACETAMOL [Suspect]
  9. PREDNISOLONE [Suspect]
  10. ZOMIG [Suspect]
     Indication: MIGRAINE

REACTIONS (2)
  - Breast cancer [Unknown]
  - Drug interaction [Unknown]
